FAERS Safety Report 6490054-3 (Version None)
Quarter: 2009Q4

REPORT INFORMATION
  Report Type: 
  Country: None (occurrence: None)
  Receive Date: 20091211
  Receipt Date: 20091209
  Transmission Date: 20100525
  Serious: Yes (Other)
  Sender: FDA-Public Use
  Company Number: SK-ROCHE-672228

PATIENT
  Sex: Female

DRUGS (2)
  1. XELODA [Suspect]
     Indication: BREAST CANCER
     Route: 065
     Dates: start: 20090813, end: 20090917
  2. TYVERB [Concomitant]
     Dosage: FREQUENCY: DAILY
     Dates: start: 20090813

REACTIONS (5)
  - BURNING SENSATION [None]
  - DIARRHOEA [None]
  - JOINT RANGE OF MOTION DECREASED [None]
  - SKIN EXFOLIATION [None]
  - VOMITING [None]
